FAERS Safety Report 26150646 (Version 1)
Quarter: 2025Q4

REPORT INFORMATION
  Report Type: Spontaneous
  Country: GB (occurrence: GB)
  Receive Date: 20251212
  Receipt Date: 20251212
  Transmission Date: 20260118
  Serious: Yes (Hospitalization)
  Sender: TEVA
  Company Number: GB-TEVA-VS-3398759

PATIENT
  Sex: Female

DRUGS (1)
  1. PRAVASTATIN [Suspect]
     Active Substance: PRAVASTATIN
     Indication: Product used for unknown indication
     Route: 065

REACTIONS (5)
  - Tendon rupture [Recovering/Resolving]
  - Gait disturbance [Unknown]
  - Tendon pain [Recovering/Resolving]
  - Tendonitis [Recovering/Resolving]
  - Impaired driving ability [Unknown]
